FAERS Safety Report 8869218 (Version 1)
Quarter: 2012Q4

REPORT INFORMATION
  Report Type: 
  Country: TR (occurrence: None)
  Receive Date: 20121022
  Receipt Date: 20121022
  Transmission Date: 20130627
  Serious: Yes (Hospitalization, Other)
  Sender: FDA-Public Use
  Company Number: PNIS20120033

PATIENT
  Sex: Female

DRUGS (1)
  1. PREDNISONE [Suspect]
     Indication: PRODUCT USED FOR UNKNOWN INDICATION
     Dosage: UNKNOWN , UNKNOWN, Transplacental
     Route: 064

REACTIONS (5)
  - Maternal drugs affecting foetus [None]
  - Premature baby [None]
  - Sepsis neonatal [None]
  - Intraventricular haemorrhage [None]
  - Low birth weight baby [None]
